FAERS Safety Report 23796923 (Version 1)
Quarter: 2024Q2

REPORT INFORMATION
  Report Type: Spontaneous
  Country: ES (occurrence: ES)
  Receive Date: 20240430
  Receipt Date: 20240430
  Transmission Date: 20240716
  Serious: Yes (Other)
  Sender: FDA-Public Use
  Company Number: ES-SUN PHARMACEUTICAL INDUSTRIES LTD-2024RR-444428

PATIENT
  Age: 59 Year
  Sex: Male

DRUGS (4)
  1. ALLOPURINOL [Suspect]
     Active Substance: ALLOPURINOL
     Indication: Non-Hodgkin^s lymphoma
     Dosage: 300 MG, ONCE A DAY
     Route: 048
     Dates: start: 20230503, end: 20230710
  2. LENALIDOMIDE [Suspect]
     Active Substance: LENALIDOMIDE
     Indication: Non-Hodgkin^s lymphoma
     Dosage: 10 MG, ONCE A DAY
     Route: 048
     Dates: start: 20230605, end: 20230710
  3. SULFAMETHOXAZOLE\TRIMETHOPRIM [Suspect]
     Active Substance: SULFAMETHOXAZOLE\TRIMETHOPRIM
     Indication: Non-Hodgkin^s lymphoma
     Dosage: 1 DOSAGE FORM, DAILY, 800/160 MG, ONCE A DAY
     Route: 048
     Dates: start: 20230603, end: 20230710
  4. RITUXIMAB [Suspect]
     Active Substance: RITUXIMAB
     Indication: Non-Hodgkin^s lymphoma
     Dosage: 1 DOSE/WEEK
     Route: 040
     Dates: start: 20230605, end: 20230710

REACTIONS (2)
  - Drug reaction with eosinophilia and systemic symptoms [Recovered/Resolved]
  - Acute kidney injury [Recovered/Resolved]

NARRATIVE: CASE EVENT DATE: 20230630
